FAERS Safety Report 4447863-1 (Version None)
Quarter: 2004Q3

REPORT INFORMATION
  Report Type: 
  Country: None (occurrence: None)
  Receive Date: 20040812
  Receipt Date: 20040602
  Transmission Date: 20050211
  Serious: No
  Sender: FDA-Public Use
  Company Number: USA040669033

PATIENT
  Age: 69 Year
  Sex: Male
  Weight: 91 kg

DRUGS (1)
  1. CIALIS [Suspect]
     Dosage: 20 MG/1 DAY
     Dates: start: 20040526

REACTIONS (1)
  - THERAPEUTIC RESPONSE DELAYED [None]
